FAERS Safety Report 9680304 (Version 2)
Quarter: 2014Q1

REPORT INFORMATION
  Report Type: Spontaneous
  Country: FR (occurrence: FR)
  Receive Date: 20131111
  Receipt Date: 20140219
  Transmission Date: 20141002
  Serious: Yes (Life-Threatening, Hospitalization)
  Sender: FDA-Public Use
  Company Number: FR-BRISTOL-MYERS SQUIBB COMPANY-19729813

PATIENT
  Age: 89 Year
  Sex: Female

DRUGS (1)
  1. COUMADIN TABS [Suspect]
     Indication: ATRIAL FIBRILLATION
     Route: 048
     Dates: end: 20130825

REACTIONS (5)
  - Small intestinal haemorrhage [Recovered/Resolved]
  - Anaemia [Recovering/Resolving]
  - Ischaemic stroke [Recovering/Resolving]
  - Malaise [Recovering/Resolving]
  - Melaena [Recovered/Resolved]
